FAERS Safety Report 8983885 (Version 3)
Quarter: 2013Q2

REPORT INFORMATION
  Report Type: Spontaneous
  Country: AU (occurrence: AU)
  Receive Date: 20121224
  Receipt Date: 20130408
  Transmission Date: 20140414
  Serious: Yes (Hospitalization, Other)
  Sender: FDA-Public Use
  Company Number: AU-ROCHE-1172998

PATIENT
  Age: 67 Year
  Sex: Male

DRUGS (5)
  1. VEMURAFENIB [Suspect]
     Indication: METASTATIC MALIGNANT MELANOMA
     Route: 048
     Dates: start: 20120227, end: 20120815
  2. VEMURAFENIB [Suspect]
     Route: 065
     Dates: end: 201209
  3. LOPERAMIDE [Concomitant]
     Indication: DIARRHOEA
     Route: 065
  4. OXYCODONE [Concomitant]
     Indication: PAIN
     Route: 065
  5. IBUPROFEN [Concomitant]
     Indication: PAIN
     Route: 065

REACTIONS (5)
  - Transaminases increased [Recovered/Resolved]
  - Hyperbilirubinaemia [Recovered/Resolved]
  - Transaminases increased [Recovered/Resolved]
  - Disease progression [Unknown]
  - Hepatotoxicity [Unknown]
